FAERS Safety Report 9366557 (Version 2)
Quarter: 2013Q3

REPORT INFORMATION
  Report Type: Spontaneous
  Country: US (occurrence: US)
  Receive Date: 20130625
  Receipt Date: 20130827
  Transmission Date: 20140515
  Serious: Yes (Disabling, Other)
  Sender: FDA-Public Use
  Company Number: US-PAR PHARMACEUTICAL, INC-2013SCPR005985

PATIENT
  Sex: 0

DRUGS (3)
  1. METOCLOPRAMIDE [Suspect]
     Indication: DIABETIC GASTROPARESIS
     Dosage: 10 MG, QID
     Route: 048
     Dates: start: 2006
  2. REQUIP [Suspect]
     Indication: RESTLESS LEGS SYNDROME
     Dosage: 1 MG, HS
     Route: 065
  3. REQUIP [Suspect]
     Indication: TREMOR

REACTIONS (10)
  - Brain stem stroke [Unknown]
  - Amnesia [Unknown]
  - Activities of daily living impaired [Unknown]
  - Tardive dyskinesia [Unknown]
  - Akathisia [Unknown]
  - Dysphagia [Unknown]
  - Fall [Unknown]
  - Dizziness [Unknown]
  - Anxiety [Unknown]
  - Depression [Unknown]
